FAERS Safety Report 13953703 (Version 1)
Quarter: 2017Q3

REPORT INFORMATION
  Report Type: Spontaneous
  Country: US (occurrence: None)
  Receive Date: 20170908
  Receipt Date: 20170908
  Transmission Date: 20171128
  Serious: No
  Sender: FDA-Public Use
  Company Number: None

PATIENT
  Age: 64 Year
  Sex: Female

DRUGS (1)
  1. SIROLIMUS TAB 1MG [Suspect]
     Active Substance: SIROLIMUS

REACTIONS (5)
  - Peripheral swelling [None]
  - Nodule [None]
  - Ocular hyperaemia [None]
  - Rash [None]
  - Myalgia [None]

NARRATIVE: CASE EVENT DATE: 20170908
